FAERS Safety Report 20077297 (Version 1)
Quarter: 2021Q4

REPORT INFORMATION
  Report Type: Spontaneous
  Country: US (occurrence: US)
  Receive Date: 20211116
  Receipt Date: 20211116
  Transmission Date: 20220303
  Serious: Yes (Other)
  Sender: FDA-Public Use
  Company Number: US-GILEAD-2021-0555545

PATIENT

DRUGS (1)
  1. ATRIPLA [Suspect]
     Active Substance: EFAVIRENZ\EMTRICITABINE\TENOFOVIR DISOPROXIL FUMARATE
     Indication: HIV infection
     Route: 065

REACTIONS (6)
  - Drug resistance [Unknown]
  - Nerve injury [Unknown]
  - Peripheral motor neuropathy [Unknown]
  - Arthralgia [Unknown]
  - Lipodystrophy acquired [Unknown]
  - Malaise [Unknown]

NARRATIVE: CASE EVENT DATE: 20160101
